FAERS Safety Report 13406073 (Version 3)
Quarter: 2017Q3

REPORT INFORMATION
  Report Type: Spontaneous
  Country: US (occurrence: US)
  Receive Date: 20170405
  Receipt Date: 20170720
  Transmission Date: 20171127
  Serious: Yes (Hospitalization, Other)
  Sender: FDA-Public Use
  Company Number: US-JNJFOC-20170333266

PATIENT
  Age: 6 Decade
  Sex: Female

DRUGS (2)
  1. LEVAQUIN [Suspect]
     Active Substance: LEVOFLOXACIN
     Indication: URINARY TRACT INFECTION
     Route: 042
     Dates: start: 201609, end: 201609
  2. LEVAQUIN [Suspect]
     Active Substance: LEVOFLOXACIN
     Indication: URINARY TRACT INFECTION
     Route: 048
     Dates: start: 201609, end: 201609

REACTIONS (21)
  - Wheezing [Unknown]
  - Blood pressure increased [Unknown]
  - Mast cell activation syndrome [Unknown]
  - Mental impairment [Unknown]
  - Gait disturbance [Unknown]
  - Heart rate increased [Unknown]
  - Seizure [Unknown]
  - Aphasia [Unknown]
  - Headache [Unknown]
  - Renal disorder [Unknown]
  - Adverse event [Unknown]
  - Multiple allergies [Unknown]
  - Hepatic function abnormal [Unknown]
  - Abdominal pain upper [Unknown]
  - Food allergy [Unknown]
  - Diarrhoea [Unknown]
  - Palpitations [Unknown]
  - Blood glucose increased [Unknown]
  - Visual impairment [Unknown]
  - Hypomagnesaemia [Unknown]
  - Hypovitaminosis [Unknown]

NARRATIVE: CASE EVENT DATE: 201609
